FAERS Safety Report 16635143 (Version 3)
Quarter: 2019Q3

REPORT INFORMATION
  Report Type: Spontaneous
  Country: US (occurrence: US)
  Receive Date: 20190726
  Receipt Date: 20190809
  Transmission Date: 20191004
  Serious: Yes (Hospitalization)
  Sender: FDA-Public Use
  Company Number: US-GLAXOSMITHKLINE-US2019131779

PATIENT
  Age: 49 Year
  Sex: Male

DRUGS (1)
  1. ALBUTEROL SULFATE. [Suspect]
     Active Substance: ALBUTEROL SULFATE
     Indication: PNEUMONIA
     Dosage: 2 PUFF(S), PRN
     Route: 055
     Dates: start: 20190717

REACTIONS (6)
  - Product dose omission [Recovered/Resolved]
  - Dyspnoea [Recovered/Resolved]
  - Wrong technique in device usage process [Recovered/Resolved]
  - Product complaint [Unknown]
  - Malaise [Not Recovered/Not Resolved]
  - Product use in unapproved indication [Unknown]

NARRATIVE: CASE EVENT DATE: 20190717
